FAERS Safety Report 10393377 (Version 1)
Quarter: 2014Q3

REPORT INFORMATION
  Report Type: Spontaneous
  Country: IT (occurrence: IT)
  Receive Date: 20140819
  Receipt Date: 20140819
  Transmission Date: 20150326
  Serious: Yes (Hospitalization)
  Sender: FDA-Public Use
  Company Number: IT-TEVA-501591ISR

PATIENT
  Age: 69 Year
  Sex: Female

DRUGS (7)
  1. ENDOXAN BAXTER 500 MG [Suspect]
     Active Substance: CYCLOPHOSPHAMIDE
     Indication: NON-HODGKIN^S LYMPHOMA
     Dosage: 1200 MILLIGRAM DAILY; POWDER FOR SOLUTION FOR INJECTION
     Route: 042
     Dates: start: 20130822, end: 20131003
  2. MABTHERA [Suspect]
     Active Substance: RITUXIMAB
     Indication: NON-HODGKIN^S LYMPHOMA
     Dosage: 600 MILLIGRAM DAILY;
     Route: 042
     Dates: start: 20130822, end: 20131003
  3. SOLDESAM [Concomitant]
     Active Substance: DEXAMETHASONE
  4. ZOFRAN 8 MG [Concomitant]
  5. ADRIBLASTINA [Suspect]
     Active Substance: DOXORUBICIN HYDROCHLORIDE
     Indication: NON-HODGKIN^S LYMPHOMA
     Dosage: 80 MILLIGRAM DAILY; POWDER AND SOLVENT FOR SOLUTION FOR INJECTION
     Route: 042
     Dates: start: 20130822, end: 20131003
  6. VINCRISTINA TEVA ITALIA [Suspect]
     Active Substance: VINCRISTINE
     Indication: NON-HODGKIN^S LYMPHOMA
     Dosage: 1.5 MILLIGRAM DAILY;
     Route: 042
     Dates: start: 20130822, end: 20131003
  7. ESOMEPRAZOLO SODICO [Concomitant]

REACTIONS (1)
  - Febrile neutropenia [Recovered/Resolved]

NARRATIVE: CASE EVENT DATE: 20131011
